FAERS Safety Report 5947753-9 (Version None)
Quarter: 2008Q4

REPORT INFORMATION
  Report Type: 
  Country: None (occurrence: None)
  Receive Date: 20081110
  Receipt Date: 20081110
  Transmission Date: 20090506
  Serious: No
  Sender: FDA-Public Use
  Company Number: None

PATIENT

DRUGS (4)
  1. PULMICORT [Suspect]
     Indication: ASTHMA
     Dosage: 2 PUFFS 2 TIMES DAILY PO
     Route: 048
  2. PULMICORT [Suspect]
     Indication: CHRONIC OBSTRUCTIVE PULMONARY DISEASE
     Dosage: 2 PUFFS 2 TIMES DAILY PO
     Route: 048
  3. ALPRAZOLAM [Suspect]
     Indication: GENERALISED ANXIETY DISORDER
     Dosage: 1 MG EVERY 12 HOURS PO
     Route: 048
  4. ALPRAZOLAM [Suspect]
     Indication: PANIC DISORDER
     Dosage: 1 MG EVERY 12 HOURS PO
     Route: 048

REACTIONS (1)
  - UNEVALUABLE EVENT [None]
